FAERS Safety Report 6359868-4 (Version None)
Quarter: 2009Q3

REPORT INFORMATION
  Report Type: 
  Country: None (occurrence: None)
  Receive Date: 20090917
  Receipt Date: 20090910
  Transmission Date: 20100115
  Serious: Yes (Hospitalization)
  Sender: FDA-Public Use
  Company Number: B0593761A

PATIENT
  Sex: Female

DRUGS (14)
  1. AVANDAMET [Suspect]
     Dosage: 1Z PER DAY
     Route: 048
     Dates: start: 20080101, end: 20081119
  2. CAPOZIDE 25/15 [Suspect]
     Indication: ESSENTIAL HYPERTENSION
     Dosage: 50MG PER DAY
     Route: 048
     Dates: start: 20080101, end: 20081105
  3. METOLAZONE [Suspect]
     Indication: DRUG USE FOR UNKNOWN INDICATION
     Dosage: 5MG PER DAY
     Route: 048
     Dates: start: 20080101, end: 20081105
  4. DAFALGAN [Suspect]
     Indication: DRUG USE FOR UNKNOWN INDICATION
     Dosage: 1G AS REQUIRED
     Route: 048
  5. KCL RETARD [Concomitant]
     Route: 048
  6. SERETIDE [Concomitant]
     Indication: CHRONIC OBSTRUCTIVE PULMONARY DISEASE
     Dosage: 1U PER DAY
     Route: 055
  7. VENTOLIN [Concomitant]
     Indication: CHRONIC OBSTRUCTIVE PULMONARY DISEASE
     Route: 055
  8. PSYLLIUM [Concomitant]
     Dosage: 1U PER DAY
     Route: 048
     Dates: end: 20081101
  9. METAMUCIL [Concomitant]
     Dosage: 1U PER DAY
     Route: 048
     Dates: start: 20081101
  10. FOSAMAX [Concomitant]
     Indication: OSTEOPOROSIS
     Route: 048
  11. CALCIMAGON-D3 [Concomitant]
     Indication: OSTEOPOROSIS
     Dosage: 1U PER DAY
     Route: 048
  12. PREDNISON [Concomitant]
     Indication: CHRONIC OBSTRUCTIVE PULMONARY DISEASE
     Dosage: 50MG PER DAY
     Route: 048
     Dates: start: 20081108, end: 20081112
  13. ADALAT [Concomitant]
     Indication: ESSENTIAL HYPERTENSION
     Dosage: 30MG PER DAY
     Route: 048
     Dates: start: 20081117
  14. GLUCOPHAGE [Concomitant]
     Dosage: 850MG PER DAY
     Route: 048
     Dates: start: 20081119

REACTIONS (5)
  - CHRONIC OBSTRUCTIVE PULMONARY DISEASE [None]
  - IDIOPATHIC THROMBOCYTOPENIC PURPURA [None]
  - MEGAKARYOCYTES INCREASED [None]
  - PETECHIAE [None]
  - THROMBOCYTOPENIA [None]
